FAERS Safety Report 9467187 (Version 2)
Quarter: 2013Q4

REPORT INFORMATION
  Report Type: Spontaneous
  Country: US (occurrence: US)
  Receive Date: 20130821
  Receipt Date: 20131028
  Transmission Date: 20140711
  Serious: Yes (Disabling)
  Sender: FDA-Public Use
  Company Number: US-009507513-1308USA008141

PATIENT
  Sex: Male

DRUGS (1)
  1. THERAPY UNSPECIFIED [Suspect]
     Indication: CHEST PAIN
     Dosage: 0.4MG EVERY 24 HOURS AND TAKEN OFF AT NIGHT, APPLIED TO UPPER ARM
     Route: 062
     Dates: start: 20130726

REACTIONS (2)
  - Coronary artery disease [Not Recovered/Not Resolved]
  - Chest pain [Not Recovered/Not Resolved]
